FAERS Safety Report 24028414 (Version 1)
Quarter: 2024Q2

REPORT INFORMATION
  Report Type: Spontaneous
  Country: US (occurrence: US)
  Receive Date: 20240628
  Receipt Date: 20240628
  Transmission Date: 20240716
  Serious: Yes (Other)
  Sender: FDA-Public Use
  Company Number: US-AMERICAN REGENT INC-2024002338

PATIENT
  Sex: Female

DRUGS (4)
  1. DROPERIDOL [Suspect]
     Active Substance: DROPERIDOL
     Indication: Pain
     Dosage: UNK
     Route: 042
     Dates: start: 20240616, end: 20240616
  2. DROPERIDOL [Suspect]
     Active Substance: DROPERIDOL
     Indication: Urinary tract pain
  3. COMPAZINE [Suspect]
     Active Substance: PROCHLORPERAZINE MALEATE
     Indication: Product used for unknown indication
     Dosage: UNK
     Route: 065
  4. BENADRYL [Concomitant]
     Active Substance: DIPHENHYDRAMINE HYDROCHLORIDE
     Indication: Prophylaxis
     Dosage: UNK
     Route: 065
     Dates: start: 20240616, end: 20240616

REACTIONS (4)
  - Ill-defined disorder [Not Recovered/Not Resolved]
  - Akathisia [Not Recovered/Not Resolved]
  - Product use in unapproved indication [Unknown]
  - Product quality issue [Unknown]

NARRATIVE: CASE EVENT DATE: 20240616
